FAERS Safety Report 9697190 (Version 1)
Quarter: 2013Q4

REPORT INFORMATION
  Report Type: Report from Study
  Country: CA (occurrence: CA)
  Receive Date: 20131120
  Receipt Date: 20131120
  Transmission Date: 20140711
  Serious: Yes (Other)
  Sender: FDA-Public Use
  Company Number: CA-ROCHE-1302412

PATIENT
  Age: 52 Year
  Sex: Female
  Weight: 79.45 kg

DRUGS (6)
  1. BEVACIZUMAB [Suspect]
     Indication: PRODUCT USED FOR UNKNOWN INDICATION
     Route: 042
  2. BEVACIZUMAB [Suspect]
     Dosage: DURATION: 28 DAYS
     Route: 042
  3. BEVACIZUMAB [Suspect]
     Route: 042
  4. LOMUSTINE [Suspect]
     Indication: PRODUCT USED FOR UNKNOWN INDICATION
     Route: 065
  5. TRILEPTAL [Concomitant]
     Indication: PRODUCT USED FOR UNKNOWN INDICATION
     Route: 065
  6. TEMODAL [Concomitant]
     Route: 065

REACTIONS (5)
  - Disease progression [Not Recovered/Not Resolved]
  - Dizziness [Not Recovered/Not Resolved]
  - Haematemesis [Not Recovered/Not Resolved]
  - Headache [Not Recovered/Not Resolved]
  - Nausea [Not Recovered/Not Resolved]
